FAERS Safety Report 4623894-3 (Version None)
Quarter: 2005Q1

REPORT INFORMATION
  Report Type: 
  Country: None (occurrence: None)
  Receive Date: 20050331
  Receipt Date: 20050113
  Transmission Date: 20050727
  Serious: Yes (Hospitalization)
  Sender: FDA-Public Use
  Company Number: IL-ROCHE-392275

PATIENT
  Age: 58 Year
  Sex: Female
  Weight: 80 kg

DRUGS (7)
  1. CAPECITABINE [Suspect]
     Indication: COLORECTAL CANCER
     Dosage: GIVEN FROM DAYS ONE TO FOURTEEN OF A THREE WEEK CYCLE.
     Route: 048
     Dates: start: 20041021
  2. BEVACIZUMAB [Suspect]
     Indication: COLON CANCER
     Route: 042
     Dates: start: 20041021
  3. CAMPTO [Suspect]
     Indication: COLORECTAL CANCER
     Dosage: GIVEN ON DAYS ONE AND EIGHT OF A THREE WEEK CYCLE.
     Route: 042
     Dates: start: 20041021
  4. PROCTO-GLYVENOL SUPPOSITORIUM [Concomitant]
     Dates: start: 20041111
  5. CONVERTIN [Concomitant]
     Dates: start: 19990615
  6. GASTRO [Concomitant]
     Dates: start: 20041209
  7. OXYCONTIN [Concomitant]
     Dates: start: 20050308

REACTIONS (3)
  - HAEMORRHOIDS [None]
  - INTESTINAL OBSTRUCTION [None]
  - VOMITING [None]
